FAERS Safety Report 8599290-3 (Version None)
Quarter: 2012Q3

REPORT INFORMATION
  Report Type: 
  Country: None (occurrence: None)
  Receive Date: 20120816
  Receipt Date: 20120801
  Transmission Date: 20120928
  Serious: Yes (Other)
  Sender: FDA-Public Use
  Company Number: DE-FRI-1000037722

PATIENT
  Sex: Female

DRUGS (13)
  1. MEMANTINE HCL [Suspect]
     Indication: COMPLEX REGIONAL PAIN SYNDROME
     Dosage: 60 MG
     Dates: start: 20100417, end: 20100417
  2. MEMANTINE HCL [Suspect]
  3. MEMANTINE HCL [Suspect]
     Indication: PROPHYLAXIS
  4. MEMANTINE HCL [Suspect]
     Dosage: 80 MG
     Dates: start: 20100418, end: 20100425
  5. MEMANTINE HCL [Suspect]
     Dosage: 20 MG
  6. HALDOL [Concomitant]
     Indication: HALLUCINATION
     Dosage: 24 MG
     Dates: start: 20100418, end: 20100425
  7. MEMANTINE HCL [Suspect]
     Indication: NEURALGIA
  8. MEMANTINE HCL [Suspect]
  9. MEMANTINE HCL [Suspect]
  10. MEMANTINE HCL [Suspect]
  11. MEMANTINE HCL [Suspect]
     Indication: PAIN
     Dosage: 20 MG
     Dates: start: 20100416, end: 20100416
  12. HALDOL [Concomitant]
     Indication: NAUSEA
     Dosage: 15 DROPS
     Route: 048
     Dates: start: 20100416, end: 20100417
  13. ARCOXIA [Concomitant]
     Indication: PAIN
     Dosage: 60 MG

REACTIONS (10)
  - NAUSEA [None]
  - DIZZINESS [None]
  - THERAPEUTIC RESPONSE UNEXPECTED [None]
  - HEADACHE [None]
  - FATIGUE [None]
  - RESTLESSNESS [None]
  - OFF LABEL USE [None]
  - PRE-EXISTING CONDITION IMPROVED [None]
  - SOMNOLENCE [None]
  - GAIT DISTURBANCE [None]
